FAERS Safety Report 13042914 (Version 1)
Quarter: 2016Q4

REPORT INFORMATION
  Report Type: Spontaneous
  Country: US (occurrence: US)
  Receive Date: 20161219
  Receipt Date: 20161219
  Transmission Date: 20170207
  Serious: No
  Sender: FDA-Public Use
  Company Number: US-JAZZ-2016-US-022681

PATIENT
  Sex: Female

DRUGS (35)
  1. VALERIAN ROOT [Concomitant]
     Active Substance: VALERIAN
  2. OMNARIS [Concomitant]
     Active Substance: CICLESONIDE
  3. PEPCID AC [Concomitant]
     Active Substance: FAMOTIDINE
  4. REMICADE [Concomitant]
     Active Substance: INFLIXIMAB
  5. XYREM [Suspect]
     Active Substance: SODIUM OXYBATE
     Dosage: 2.75 G, QD, FIRST DOSE
     Route: 048
     Dates: start: 201509
  6. XYREM [Suspect]
     Active Substance: SODIUM OXYBATE
     Dosage: 3.25G, QD, SECOND DOSE
     Route: 048
     Dates: start: 201509
  7. RITALIN [Concomitant]
     Active Substance: METHYLPHENIDATE HYDROCHLORIDE
  8. VERAPAMIL [Concomitant]
     Active Substance: VERAPAMIL HYDROCHLORIDE
  9. FOLIC ACID. [Concomitant]
     Active Substance: FOLIC ACID
  10. AMINO ACID [Concomitant]
     Active Substance: AMINO ACIDS
  11. XYREM [Suspect]
     Active Substance: SODIUM OXYBATE
     Indication: NARCOLEPSY
     Dosage: 2G, BID
     Route: 048
     Dates: start: 201201, end: 2012
  12. ALDACTONE [Concomitant]
     Active Substance: SPIRONOLACTONE
  13. ZOFRAN [Concomitant]
     Active Substance: ONDANSETRON HYDROCHLORIDE
  14. ADDERALL [Concomitant]
     Active Substance: AMPHETAMINE ASPARTATE\AMPHETAMINE SULFATE\DEXTROAMPHETAMINE SACCHARATE\DEXTROAMPHETAMINE SULFATE
  15. HYTRIN [Concomitant]
     Active Substance: TERAZOSIN HYDROCHLORIDE
  16. NIACIN. [Concomitant]
     Active Substance: NIACIN
  17. TRAMADOL HCL [Concomitant]
     Active Substance: TRAMADOL HYDROCHLORIDE
  18. NEURONTIN [Concomitant]
     Active Substance: GABAPENTIN
  19. PRED FORTE [Concomitant]
     Active Substance: PREDNISOLONE ACETATE
  20. REGLAN [Concomitant]
     Active Substance: METOCLOPRAMIDE HYDROCHLORIDE
  21. SINGULAIR [Concomitant]
     Active Substance: MONTELUKAST SODIUM
  22. METHOTREXATE. [Concomitant]
     Active Substance: METHOTREXATE
  23. PANLOR [Concomitant]
     Active Substance: ACETAMINOPHEN\CAFFEINE\DIHYDROCODEINE BITARTRATE
  24. ACETYL-L-CARNITINE HCL [Concomitant]
  25. SCOPOLAMINE [Concomitant]
     Active Substance: SCOPOLAMINE
  26. HYDROCODONE/ACETAMINOPHEN [Concomitant]
     Active Substance: ACETAMINOPHEN\HYDROCODONE
  27. XYREM [Suspect]
     Active Substance: SODIUM OXYBATE
     Indication: CATAPLEXY
     Dosage: DOSE ADJUSTMENT
     Route: 048
     Dates: start: 201312, end: 2015
  28. VYVANSE [Concomitant]
     Active Substance: LISDEXAMFETAMINE DIMESYLATE
  29. VITAMIN D3 [Concomitant]
     Active Substance: CHOLECALCIFEROL
  30. FLOVENT [Concomitant]
     Active Substance: FLUTICASONE PROPIONATE
  31. METANX [Concomitant]
     Active Substance: LEVOMEFOLATE CALCIUM\METHYLCOBALAMIN\PYRIDOXAL PHOSPHATE ANHYDROUS
  32. METHYLPREDNISOLONE. [Concomitant]
     Active Substance: METHYLPREDNISOLONE
  33. NUVIGIL [Concomitant]
     Active Substance: ARMODAFINIL
  34. DYRENIUM [Concomitant]
     Active Substance: TRIAMTERENE
  35. PLAQUENIL [Concomitant]
     Active Substance: HYDROXYCHLOROQUINE SULFATE

REACTIONS (1)
  - Headache [Unknown]
